FAERS Safety Report 5816254 (Version 5)
Quarter: 2012Q4

REPORT INFORMATION
  Report Type: 
  Country: JP (occurrence: JP)
  Receive Date: 20050610
  Receipt Date: 20120928
  Transmission Date: 20130627
  Serious: Yes (Hospitalization)
  Sender: FDA-Public Use
  Company Number: JP-JNJFOC-20050600337

PATIENT
  Age: 40 Year
  Sex: Male
  Weight: 52 kg

DRUGS (16)
  1. REMICADE [Suspect]
     Indication: CROHN^S DISEASE
     Dosage: 07-OCT  Treatment ineffective
     Route: 042
     Dates: start: 20020906
  2. REMICADE [Suspect]
     Indication: CROHN^S DISEASE
     Dosage: 06-SEP  Treatment ineffective
     Route: 042
     Dates: start: 20020809
  3. REMICADE [Suspect]
     Indication: CROHN^S DISEASE
     Dosage: 09-AUG Treatment ineffective
     Route: 042
     Dates: start: 20020726
  4. DAIKEN CHUUTOU [Concomitant]
     Indication: CROHN^S DISEASE
     Route: 048
  5. SALAZOPYRIN [Concomitant]
     Indication: CROHN^S DISEASE
     Dosage: Route of adm: PR
     Dates: start: 20021024, end: 20030820
  6. SALAZOPYRIN [Concomitant]
     Indication: CROHN^S DISEASE
     Dosage: oral.
     Dates: start: 20020206, end: 20030630
  7. PHELLOBERIN [Concomitant]
     Indication: CROHN^S DISEASE
     Route: 048
     Dates: start: 20020809, end: 20020920
  8. CRAVIT [Concomitant]
     Indication: CROHN^S DISEASE
     Route: 048
     Dates: start: 20020920, end: 20020927
  9. FENAZOX [Concomitant]
     Indication: CROHN^S DISEASE
     Route: 048
  10. PREDONINE [Concomitant]
     Indication: CROHN^S DISEASE
     Route: 048
     Dates: start: 20030418, end: 20030422
  11. PREDONINE [Concomitant]
     Indication: CROHN^S DISEASE
     Route: 048
     Dates: start: 20030409, end: 20030412
  12. PREDONINE [Concomitant]
     Indication: CROHN^S DISEASE
     Route: 048
     Dates: start: 20030413, end: 20030417
  13. PREDONINE [Concomitant]
     Indication: CROHN^S DISEASE
     Route: 048
     Dates: start: 20030423, end: 20030619
  14. ENTERAL NUTRITION [Concomitant]
  15. IMURAN [Concomitant]
     Indication: CROHN^S DISEASE
     Route: 048
     Dates: start: 20030409, end: 20030619
  16. DA JIAN ZHONG TANG [Concomitant]
     Indication: CROHN^S DISEASE
     Route: 048
     Dates: start: 20020609

REACTIONS (4)
  - Anal cancer metastatic [Not Recovered/Not Resolved]
  - Anal cancer [Not Recovered/Not Resolved]
  - Crohn^s disease [Unknown]
  - Drug ineffective [Unknown]
